FAERS Safety Report 8876996 (Version 1)
Quarter: 2012Q4

REPORT INFORMATION
  Report Type: 
  Country: CA (occurrence: CA)
  Receive Date: 20121030
  Receipt Date: 20121030
  Transmission Date: 20130627
  Serious: Yes (Other)
  Sender: FDA-Public Use
  Company Number: PHMT2006CA01754

PATIENT
  Age: 26 Year
  Sex: Female

DRUGS (5)
  1. SANDOSTATIN LAR [Suspect]
     Indication: NEUROENDOCRINE TUMOUR
     Dosage: 20 mg, every 2 weeks
     Dates: start: 20060406
  2. SANDOSTATIN LAR [Suspect]
     Dosage: 40 mg, UNK
     Dates: start: 20060914
  3. LOSEC [Concomitant]
  4. RANITIDINE [Concomitant]
  5. CELEXA [Concomitant]

REACTIONS (6)
  - Carcinoid crisis [Unknown]
  - Incorrect dose administered [Unknown]
  - Back pain [Unknown]
  - Nausea [Unknown]
  - Vomiting [Unknown]
  - Abdominal pain [Unknown]
